FAERS Safety Report 4356441-4 (Version None)
Quarter: 2004Q2

REPORT INFORMATION
  Report Type: 
  Country: None (occurrence: None)
  Receive Date: 20040512
  Receipt Date: 20040102
  Transmission Date: 20050107
  Serious: No
  Sender: FDA-Public Use
  Company Number: US-GLAXOSMITHKLINE-A0490975A

PATIENT
  Sex: Female

DRUGS (6)
  1. RELAFEN [Suspect]
     Indication: PAIN
     Dosage: 500MG TWICE PER DAY
     Route: 048
     Dates: start: 20040101
  2. CLARITIN [Concomitant]
  3. EXTRA STRENGTH TYLENOL [Concomitant]
  4. CALCIUM [Concomitant]
  5. MULTI-VITAMIN [Concomitant]
  6. IRON [Concomitant]

REACTIONS (2)
  - HEART RATE INCREASED [None]
  - TREMOR [None]
